FAERS Safety Report 6479993-7 (Version None)
Quarter: 2009Q4

REPORT INFORMATION
  Report Type: 
  Country: None (occurrence: None)
  Receive Date: 20091208
  Receipt Date: 20091120
  Transmission Date: 20100525
  Serious: Yes (Hospitalization, Other)
  Sender: FDA-Public Use
  Company Number: FR-SANOFI-AVENTIS-2009SA005513

PATIENT
  Age: 80 Year
  Sex: Male
  Weight: 39 kg

DRUGS (11)
  1. LEVOFLOXACIN [Suspect]
     Indication: INFECTION
     Route: 048
     Dates: start: 20090930, end: 20091029
  2. RIFAMPICIN [Suspect]
     Indication: INFECTION
     Route: 048
     Dates: start: 20090930, end: 20091029
  3. CARDENSIEL [Concomitant]
     Indication: DRUG USE FOR UNKNOWN INDICATION
  4. HEMIGOXINE NATIVELLE [Concomitant]
     Indication: DRUG USE FOR UNKNOWN INDICATION
  5. LOVENOX [Concomitant]
     Indication: DRUG USE FOR UNKNOWN INDICATION
  6. HALDOL [Concomitant]
     Indication: DRUG USE FOR UNKNOWN INDICATION
  7. VITAMINE B [Concomitant]
     Indication: DRUG USE FOR UNKNOWN INDICATION
  8. STABLON [Concomitant]
     Indication: DRUG USE FOR UNKNOWN INDICATION
  9. EFFERALGAN [Concomitant]
     Indication: DRUG USE FOR UNKNOWN INDICATION
  10. PROSCAR [Concomitant]
     Indication: DRUG USE FOR UNKNOWN INDICATION
  11. FORLAX [Concomitant]
     Indication: DRUG USE FOR UNKNOWN INDICATION

REACTIONS (1)
  - WEIGHT DECREASED [None]
